FAERS Safety Report 4699416-8 (Version None)
Quarter: 2005Q2

REPORT INFORMATION
  Report Type: 
  Country: None (occurrence: None)
  Receive Date: 20050624
  Receipt Date: 20050311
  Transmission Date: 20051028
  Serious: Yes (Hospitalization)
  Sender: FDA-Public Use
  Company Number: US-MERCK-0503USA02589

PATIENT
  Age: 49 Year
  Sex: Male
  Weight: 59 kg

DRUGS (10)
  1. VIOXX [Suspect]
     Indication: ARTHRITIS
     Route: 048
     Dates: start: 19990101
  2. VIOXX [Suspect]
     Route: 048
     Dates: end: 20030101
  3. VIOXX [Suspect]
     Indication: PAIN
     Route: 048
     Dates: start: 19990101
  4. VIOXX [Suspect]
     Route: 048
     Dates: end: 20030101
  5. NEURONTIN [Concomitant]
     Indication: NERVOUSNESS
     Route: 065
     Dates: start: 19960101
  6. NEURONTIN [Concomitant]
     Indication: CEREBROVASCULAR ACCIDENT PROPHYLAXIS
     Route: 065
     Dates: start: 19960101
  7. BEXTRA [Concomitant]
     Route: 065
     Dates: start: 19990101, end: 20050101
  8. HYDROCODONE BITARTRATE [Concomitant]
     Route: 065
     Dates: start: 19920101, end: 19990101
  9. CELEBREX [Concomitant]
     Route: 065
     Dates: end: 20050101
  10. ULTRAM [Concomitant]
     Route: 065

REACTIONS (5)
  - BLOOD CHOLESTEROL INCREASED [None]
  - CEREBROVASCULAR ACCIDENT [None]
  - HYPERTENSION [None]
  - MYOCARDIAL INFARCTION [None]
  - PAIN [None]
